FAERS Safety Report 19481444 (Version 4)
Quarter: 2022Q1

REPORT INFORMATION
  Report Type: Spontaneous
  Country: US (occurrence: US)
  Receive Date: 20210701
  Receipt Date: 20220307
  Transmission Date: 20220423
  Serious: Yes (Hospitalization, Disabling, Other)
  Sender: FDA-Public Use
  Company Number: US-SA-SAC20210628000217

PATIENT
  Age: 53 Year
  Sex: Female

DRUGS (1)
  1. AUBAGIO [Suspect]
     Active Substance: TERIFLUNOMIDE
     Indication: Multiple sclerosis
     Dosage: 14 MG, QD
     Route: 048
     Dates: start: 20200114

REACTIONS (4)
  - Multiple sclerosis relapse [Unknown]
  - Walking disability [Unknown]
  - Mobility decreased [Unknown]
  - Catheter placement [Unknown]
